FAERS Safety Report 4725492-X (Version None)
Quarter: 2005Q3

REPORT INFORMATION
  Report Type: 
  Country: None (occurrence: None)
  Receive Date: 20050727
  Receipt Date: 20050718
  Transmission Date: 20060218
  Serious: Yes (Other)
  Sender: FDA-Public Use
  Company Number: US-JNJFOC-20050703527

PATIENT
  Sex: Female

DRUGS (6)
  1. REMICADE [Suspect]
     Route: 042
  2. REMICADE [Suspect]
     Indication: SPONDYLOARTHROPATHY
     Route: 042
  3. METHOTREXATE [Concomitant]
  4. PROPRANOLOL [Concomitant]
  5. TOPAMAX [Concomitant]
  6. PAXIL [Concomitant]

REACTIONS (2)
  - CELLULITIS [None]
  - PSORIASIS [None]
